FAERS Safety Report 26000402 (Version 1)
Quarter: 2025Q4

REPORT INFORMATION
  Report Type: Spontaneous
  Country: PR (occurrence: PR)
  Receive Date: 20251105
  Receipt Date: 20251105
  Transmission Date: 20260118
  Serious: No
  Sender: ANI
  Company Number: PR-ANIPHARMA-2025-PR-000061

PATIENT
  Age: 32 Year
  Sex: Female
  Weight: 62.6 kg

DRUGS (9)
  1. CORTICOTROPIN [Suspect]
     Active Substance: CORTICOTROPIN
     Indication: Optic neuritis
     Dosage: 80 UNITS TWICE PER WEEK
     Route: 058
     Dates: start: 202504
  2. MAGNESIUM CITRATE [Concomitant]
     Active Substance: MAGNESIUM CITRATE
     Route: 048
  3. LACTOBACILLUS ACIDOPHILUS [Concomitant]
     Active Substance: LACTOBACILLUS ACIDOPHILUS
     Route: 048
  4. Chloroform Solution [Concomitant]
  5. FISH OIL\OMEGA-3 FATTY ACIDS [Concomitant]
     Active Substance: FISH OIL\OMEGA-3 FATTY ACIDS
     Route: 048
  6. CATAFLAM [Concomitant]
     Active Substance: DICLOFENAC POTASSIUM
     Route: 048
  7. Tysabri Intravenous Concentrate [Concomitant]
  8. Vacunas/inmunoterapy [Concomitant]
  9. LORATADINE [Concomitant]
     Active Substance: LORATADINE
     Route: 048

REACTIONS (3)
  - Constipation [Unknown]
  - Abnormal weight gain [Unknown]
  - Injection site discolouration [Unknown]
